FAERS Safety Report 5703300-8 (Version None)
Quarter: 2008Q2

REPORT INFORMATION
  Report Type: 
  Country: None (occurrence: None)
  Receive Date: 20080411
  Receipt Date: 20080331
  Transmission Date: 20081010
  Serious: Yes (Other)
  Sender: FDA-Public Use
  Company Number: US-PFIZER INC-2008016615

PATIENT
  Sex: Female
  Weight: 81.6 kg

DRUGS (7)
  1. CHANTIX [Suspect]
     Indication: SMOKING CESSATION THERAPY
     Dates: start: 20071201, end: 20071201
  2. NAVANE [Suspect]
     Indication: MENTAL DISORDER
  3. NICOTINE [Suspect]
  4. ATENOLOL [Concomitant]
     Indication: HYPERTENSION
  5. ATIVAN [Concomitant]
  6. CLARITIN [Concomitant]
  7. COSAMIN [Concomitant]

REACTIONS (11)
  - CEREBROVASCULAR ACCIDENT [None]
  - COUGH [None]
  - DEPRESSION [None]
  - EPISTAXIS [None]
  - HYPERTENSION [None]
  - NERVOUSNESS [None]
  - SMOKER [None]
  - SWELLING [None]
  - TREMOR [None]
  - URTICARIA [None]
  - WEIGHT INCREASED [None]
